FAERS Safety Report 11701938 (Version 2)
Quarter: 2015Q4

REPORT INFORMATION
  Report Type: Spontaneous
  Country: ES (occurrence: ES)
  Receive Date: 20151105
  Receipt Date: 20151112
  Transmission Date: 20160304
  Serious: Yes (Life-Threatening, Other)
  Sender: FDA-Public Use
  Company Number: ES-GILEAD-2015-0179991

PATIENT
  Age: 66 Year
  Sex: Female

DRUGS (6)
  1. MEROPENEM. [Suspect]
     Active Substance: MEROPENEM
     Indication: SEPSIS
     Dosage: 2 G, QD
     Route: 042
     Dates: start: 20141016, end: 20141021
  2. DAKLINZA [Suspect]
     Active Substance: DACLATASVIR
     Indication: HEPATITIS C
     Dosage: 60 MG, QD
     Route: 048
     Dates: start: 201408, end: 20141021
  3. IMIPENEM [Suspect]
     Active Substance: IMIPENEM
     Indication: SEPSIS
     Dosage: 1.5 G, QD
     Route: 042
     Dates: start: 20141015, end: 20141016
  4. TERLIPRESINA [Concomitant]
     Indication: HEPATORENAL SYNDROME
     Route: 042
     Dates: start: 20141016, end: 20141022
  5. MICOFENOLICO ACIDO [Concomitant]
     Indication: LIVER TRANSPLANT
     Dosage: 500 MG, QD
     Route: 048
     Dates: start: 201404
  6. SOVALDI [Suspect]
     Active Substance: SOFOSBUVIR
     Indication: HEPATITIS C
     Dosage: 400 MG, QD
     Route: 048
     Dates: start: 201408, end: 20141021

REACTIONS (1)
  - Pancytopenia [Recovered/Resolved]

NARRATIVE: CASE EVENT DATE: 20141017
